FAERS Safety Report 5279320-7 (Version None)
Quarter: 2007Q1

REPORT INFORMATION
  Report Type: 
  Country: None (occurrence: None)
  Receive Date: 20070328
  Receipt Date: 20060427
  Transmission Date: 20070707
  Serious: No
  Sender: FDA-Public Use
  Company Number: US-AMGEN-US176829

PATIENT
  Sex: Female

DRUGS (3)
  1. NEULASTA [Suspect]
     Indication: CHEMOTHERAPY
     Route: 058
  2. GEMCITABINE [Concomitant]
     Route: 042
     Dates: start: 20060216
  3. CISPLATIN [Concomitant]
     Route: 042
     Dates: start: 20060217

REACTIONS (3)
  - CHILLS [None]
  - PYREXIA [None]
  - URINARY TRACT INFECTION [None]
